FAERS Safety Report 8379032-7 (Version None)
Quarter: 2012Q2

REPORT INFORMATION
  Report Type: 
  Country: None (occurrence: None)
  Receive Date: 20120522
  Receipt Date: 20120522
  Transmission Date: 20120825
  Serious: Yes (Other)
  Sender: FDA-Public Use
  Company Number: None

PATIENT
  Sex: Male
  Weight: 93.441 kg

DRUGS (1)
  1. PACERONE [Suspect]
     Indication: CARDIAC FIBRILLATION
     Dosage: 200 MG ONCE A DAY
     Dates: start: 20120115, end: 20120228

REACTIONS (6)
  - DIZZINESS [None]
  - PAIN [None]
  - BALANCE DISORDER [None]
  - NAUSEA [None]
  - HEADACHE [None]
  - INSOMNIA [None]
